FAERS Safety Report 6063560-3 (Version None)
Quarter: 2009Q1

REPORT INFORMATION
  Report Type: 
  Country: None (occurrence: None)
  Receive Date: 20090129
  Receipt Date: 20090116
  Transmission Date: 20090719
  Serious: Yes (Hospitalization)
  Sender: FDA-Public Use
  Company Number: KV200800448

PATIENT
  Age: 17 Year
  Sex: Female
  Weight: 45.4 kg

DRUGS (1)
  1. MORPHINE SULFATE [Suspect]
     Indication: TUMOUR PAIN
     Dosage: 15 MG, PRN, ORAL
     Route: 048
     Dates: start: 20050101

REACTIONS (5)
  - DYSPNOEA [None]
  - NASOPHARYNGITIS [None]
  - PRODUCT QUALITY ISSUE [None]
  - PRURITUS GENERALISED [None]
  - RASH [None]
